FAERS Safety Report 21484048 (Version 2)
Quarter: 2022Q4

REPORT INFORMATION
  Report Type: Other
  Country: CA (occurrence: None)
  Receive Date: 20221020
  Receipt Date: 20221227
  Transmission Date: 20230113
  Serious: Yes (Other)
  Sender: FDA-Public Use
  Company Number: CA-ROCHE-2351549

PATIENT
  Age: 65 Year
  Sex: Male
  Weight: 71 kg

DRUGS (16)
  1. HERCEPTIN [Suspect]
     Active Substance: TRASTUZUMAB
     Indication: Gastrooesophageal cancer
     Route: 042
     Dates: start: 20190703, end: 20190703
  2. HERCEPTIN [Suspect]
     Active Substance: TRASTUZUMAB
     Dosage: DOSING UNKNOWN - COMING OFF JACOB TRIAL. PER ENROLLMENT COMPASSIONATE DRUG FROM ROCHE SINCE 2013
     Route: 042
     Dates: end: 20190702
  3. HERCEPTIN [Suspect]
     Active Substance: TRASTUZUMAB
     Route: 042
     Dates: start: 20190724, end: 20200311
  4. HERCEPTIN [Suspect]
     Active Substance: TRASTUZUMAB
     Route: 042
     Dates: start: 20200330, end: 20200330
  5. HERCEPTIN [Suspect]
     Active Substance: TRASTUZUMAB
     Route: 042
     Dates: start: 20200311
  6. HERCEPTIN [Suspect]
     Active Substance: TRASTUZUMAB
     Route: 042
     Dates: start: 20200422, end: 20200422
  7. HERCEPTIN [Suspect]
     Active Substance: TRASTUZUMAB
     Route: 042
     Dates: start: 20200513, end: 20220304
  8. HERCEPTIN [Suspect]
     Active Substance: TRASTUZUMAB
     Route: 042
     Dates: start: 20200810
  9. HERCEPTIN [Suspect]
     Active Substance: TRASTUZUMAB
     Route: 042
     Dates: start: 20190703, end: 20190703
  10. HERCEPTIN [Suspect]
     Active Substance: TRASTUZUMAB
     Route: 042
     Dates: start: 20200330
  11. HERCEPTIN [Suspect]
     Active Substance: TRASTUZUMAB
     Route: 042
     Dates: start: 20220325
  12. PERJETA [Suspect]
     Active Substance: PERTUZUMAB
     Indication: Gastrooesophageal cancer
     Route: 042
     Dates: start: 20190703
  13. PERJETA [Suspect]
     Active Substance: PERTUZUMAB
     Dosage: DOSING UNKNOWN - COMING OFF JACOB TRIAL
     Route: 065
     Dates: end: 20190702
  14. NEXIUM [Concomitant]
     Active Substance: ESOMEPRAZOLE MAGNESIUM
  15. ACETAMINOPHEN [Concomitant]
     Active Substance: ACETAMINOPHEN
     Indication: Premedication
     Route: 048
     Dates: start: 20190703
  16. FAMCICLOVIR [Concomitant]
     Active Substance: FAMCICLOVIR
     Indication: Rash
     Dates: start: 2020

REACTIONS (9)
  - Heart rate decreased [Unknown]
  - Off label use [Unknown]
  - Blood pressure diastolic abnormal [Unknown]
  - Blood pressure diastolic decreased [Unknown]
  - Oxygen saturation decreased [Unknown]
  - Weight decreased [Not Recovered/Not Resolved]
  - Blood pressure systolic increased [Unknown]
  - Blood pressure systolic abnormal [Unknown]
  - Pneumonia [Unknown]

NARRATIVE: CASE EVENT DATE: 20190703
